FAERS Safety Report 9882269 (Version 6)
Quarter: 2015Q1

REPORT INFORMATION
  Report Type: Spontaneous
  Country: US (occurrence: US)
  Receive Date: 20140207
  Receipt Date: 20150324
  Transmission Date: 20150721
  Serious: Yes (Other)
  Sender: FDA-Public Use
  Company Number: US-AMGEN-USASP2014007821

PATIENT
  Age: 58 Year
  Sex: Female

DRUGS (2)
  1. PROLIA [Suspect]
     Active Substance: DENOSUMAB
     Indication: OSTEOPOROSIS POSTMENOPAUSAL
     Dosage: 60 MG, UNK
     Route: 065
     Dates: start: 20130731
  2. CALCIUM [Concomitant]
     Active Substance: CALCIUM
     Dosage: UNK

REACTIONS (22)
  - Sciatica [Unknown]
  - Muscle tightness [Not Recovered/Not Resolved]
  - Asthenia [Unknown]
  - Renal function test abnormal [Unknown]
  - Mobility decreased [Not Recovered/Not Resolved]
  - Pain [Unknown]
  - Burning sensation [Unknown]
  - Muscle spasms [Recovered/Resolved]
  - Musculoskeletal pain [Not Recovered/Not Resolved]
  - Confusional state [Unknown]
  - Malaise [Unknown]
  - Gait disturbance [Unknown]
  - Pain in extremity [Not Recovered/Not Resolved]
  - Tinnitus [Unknown]
  - Myalgia [Not Recovered/Not Resolved]
  - Influenza like illness [Unknown]
  - Sleep disorder due to a general medical condition [Unknown]
  - Muscle injury [Not Recovered/Not Resolved]
  - Fatigue [Unknown]
  - Hypoaesthesia [Unknown]
  - Musculoskeletal discomfort [Not Recovered/Not Resolved]
  - Fibromyalgia [Unknown]
